FAERS Safety Report 4630307-4 (Version None)
Quarter: 2005Q2

REPORT INFORMATION
  Report Type: 
  Country: None (occurrence: None)
  Receive Date: 20050406
  Receipt Date: 20050321
  Transmission Date: 20051028
  Serious: No
  Sender: FDA-Public Use
  Company Number: 10719

PATIENT
  Age: 61 Year
  Sex: Female

DRUGS (2)
  1. METHOTREXATE [Suspect]
  2. CYCLOSPORINE [Suspect]

REACTIONS (2)
  - BLOOD BILIRUBIN INCREASED [None]
  - LIVER DISORDER [None]
